FAERS Safety Report 10935887 (Version 1)
Quarter: 2015Q1

REPORT INFORMATION
  Report Type: Spontaneous
  Country: FR (occurrence: FR)
  Receive Date: 20150320
  Receipt Date: 20150320
  Transmission Date: 20150721
  Serious: Yes (Death, Other)
  Sender: FDA-Public Use
  Company Number: FR-PFIZER INC-2015099480

PATIENT
  Age: 74 Year
  Sex: Male

DRUGS (11)
  1. TIAPRIDAL [Suspect]
     Active Substance: TIAPRIDE HYDROCHLORIDE
     Dosage: 50 MG, 2X/DAY
     Route: 048
     Dates: start: 20150130
  2. LANSOPRAZOLE. [Suspect]
     Active Substance: LANSOPRAZOLE
     Dosage: 1 DF, ONCE DAILY
     Route: 048
     Dates: start: 201403
  3. TIAPRIDAL [Suspect]
     Active Substance: TIAPRIDE HYDROCHLORIDE
     Dosage: 50 MG, 2X/DAY
     Route: 048
     Dates: start: 201402, end: 201408
  4. AMOXICILLINE BASE [Concomitant]
     Active Substance: AMOXICILLIN
     Dosage: UNK
  5. TRANSIPEG [Suspect]
     Active Substance: POLYETHYLENE GLYCOL 3350
     Dosage: 5.9 G, 3X/DAY
     Route: 048
     Dates: start: 20140130
  6. CLAVULANIC ACID [Concomitant]
     Active Substance: CLAVULANIC ACID
     Dosage: UNK
  7. ALPRAZOLAM. [Suspect]
     Active Substance: ALPRAZOLAM
     Dosage: 0.25 MG, 2X/DAY
     Route: 048
     Dates: start: 20140213
  8. CITALOPRAM [Suspect]
     Active Substance: CITALOPRAM HYDROBROMIDE
     Dosage: 1 DF, ONCE DAILY
     Route: 048
     Dates: start: 20141219
  9. PARACETAMOL [Suspect]
     Active Substance: ACETAMINOPHEN
     Dosage: 1 G, 3X/DAY
     Route: 048
     Dates: start: 201407
  10. MICROPAKINE [Suspect]
     Active Substance: VALPROIC ACID
     Dosage: 500 MG, 2X/DAY
     Route: 048
     Dates: start: 201403
  11. KARDEGIC [Suspect]
     Active Substance: ASPIRIN LYSINE
     Dosage: 75 MG, DAILY
     Route: 048
     Dates: start: 20140130

REACTIONS (3)
  - Septic shock [Fatal]
  - Leukopenia [Fatal]
  - Anaemia [Fatal]

NARRATIVE: CASE EVENT DATE: 20150217
